FAERS Safety Report 23638800 (Version 7)
Quarter: 2025Q2

REPORT INFORMATION
  Report Type: Spontaneous
  Country: IN (occurrence: IN)
  Receive Date: 20240315
  Receipt Date: 20250424
  Transmission Date: 20250717
  Serious: Yes (Other)
  Sender: PFIZER
  Company Number: IN-PFIZER INC-PV202300106530

PATIENT
  Age: 59 Year
  Sex: Female

DRUGS (2)
  1. DACOMITINIB [Suspect]
     Active Substance: DACOMITINIB
     Indication: Non-small cell lung cancer metastatic
     Dosage: 30 MG, 1X/DAY
     Route: 048
     Dates: start: 20230614
  2. DACOMITINIB [Suspect]
     Active Substance: DACOMITINIB
     Dates: start: 20231103

REACTIONS (10)
  - Skin disorder [Recovered/Resolved]
  - Nail disorder [Recovered/Resolved]
  - Blood pressure increased [Unknown]
  - Rash [Recovered/Resolved]
  - Encephalomalacia [Unknown]
  - Neuropathic muscular atrophy [Unknown]
  - Cerebral small vessel ischaemic disease [Unknown]
  - Aspartate aminotransferase increased [Unknown]
  - Alanine aminotransferase increased [Unknown]
  - Gliosis [Unknown]

NARRATIVE: CASE EVENT DATE: 20231006
